FAERS Safety Report 8802440 (Version 1)
Quarter: 2012Q4

REPORT INFORMATION
  Report Type: 
  Country: US (occurrence: US)
  Receive Date: 20120921
  Receipt Date: 20120921
  Transmission Date: 20130627
  Serious: Yes (Other)
  Sender: FDA-Public Use
  Company Number: US-ABBOTT-12P-163-0979751-00

PATIENT
  Age: 83 Year
  Sex: Male

DRUGS (7)
  1. LUPROLIDE ACETATE DEPOT [Suspect]
     Indication: PROSTATE CANCER
     Route: 030
     Dates: start: 201112, end: 201208
  2. LUPROLIDE ACETATE DEPOT [Suspect]
     Route: 030
     Dates: start: 20120822, end: 20120822
  3. LISINOPRIL [Concomitant]
     Indication: PRODUCT USED FOR UNKNOWN INDICATION
  4. HYDROCHLOROTHIAZIDE [Concomitant]
     Indication: PRODUCT USED FOR UNKNOWN INDICATION
  5. ASPIRIN [Concomitant]
     Indication: PRODUCT USED FOR UNKNOWN INDICATION
  6. AMLODIPINE [Concomitant]
     Indication: PRODUCT USED FOR UNKNOWN INDICATION
  7. CLONAZEPAM [Concomitant]
     Indication: PRODUCT USED FOR UNKNOWN INDICATION

REACTIONS (9)
  - Dizziness [Unknown]
  - Syncope [Unknown]
  - Heart rate decreased [Unknown]
  - Hyperhidrosis [Unknown]
  - Vision blurred [Unknown]
  - Blood pressure decreased [Unknown]
  - Balance disorder [Unknown]
  - Asthenia [Unknown]
  - Vomiting [Unknown]
